FAERS Safety Report 7743008-0 (Version None)
Quarter: 2011Q3

REPORT INFORMATION
  Report Type: 
  Country: None (occurrence: None)
  Receive Date: 20110912
  Receipt Date: 20110902
  Transmission Date: 20111222
  Serious: Yes (Life-Threatening, Hospitalization)
  Sender: FDA-Public Use
  Company Number: FR-SANOFI-AVENTIS-2011SA056550

PATIENT
  Age: 25 Year
  Sex: Female

DRUGS (6)
  1. LORMETAZEPAM [Suspect]
     Indication: INTENTIONAL OVERDOSE
     Route: 048
     Dates: start: 20100929, end: 20100929
  2. IMOVANE [Suspect]
     Indication: INTENTIONAL OVERDOSE
     Route: 048
     Dates: start: 20100929, end: 20100929
  3. LITHIUM CARBONATE [Suspect]
     Indication: INTENTIONAL OVERDOSE
     Route: 048
     Dates: start: 20100929, end: 20100929
  4. ZOLPIDEM [Suspect]
     Indication: INTENTIONAL OVERDOSE
     Route: 048
     Dates: start: 20100929, end: 20100929
  5. BROMAZEPAM [Suspect]
     Indication: INTENTIONAL OVERDOSE
     Route: 048
     Dates: start: 20100929, end: 20100929
  6. ESCITALOPRAM OXALATE [Concomitant]
     Indication: INTENTIONAL OVERDOSE
     Route: 048
     Dates: start: 20100929, end: 20100929

REACTIONS (3)
  - ANTIPSYCHOTIC DRUG LEVEL ABOVE THERAPEUTIC [None]
  - BRADYCARDIA [None]
  - MULTIPLE DRUG OVERDOSE [None]
